FAERS Safety Report 20201086 (Version 1)
Quarter: 2021Q4

REPORT INFORMATION
  Report Type: Spontaneous
  Country: US (occurrence: None)
  Receive Date: 20211217
  Receipt Date: 20211217
  Transmission Date: 20220303
  Serious: Yes (Hospitalization)
  Sender: FDA-Public Use
  Company Number: None

PATIENT
  Sex: Male

DRUGS (3)
  1. ZARXIO [Suspect]
     Active Substance: FILGRASTIM-SNDZ
     Indication: Pancytopenia
     Dosage: OTHER FREQUENCY : 480 MCG/0.8ML ?FREQUENCY:  EVERY MONDAY, WEDNESDAY AND FRIDAY FOR 2 WEEKS
     Route: 058
     Dates: start: 20211019
  2. FOLIC ACID [Concomitant]
     Active Substance: FOLIC ACID
  3. LEVETIRACETAM [Concomitant]
     Active Substance: LEVETIRACETAM

REACTIONS (2)
  - Hospitalisation [None]
  - Therapy interrupted [None]
